FAERS Safety Report 23411145 (Version 1)
Quarter: 2024Q1

REPORT INFORMATION
  Report Type: Spontaneous
  Country: US (occurrence: None)
  Receive Date: 20240117
  Receipt Date: 20240117
  Transmission Date: 20240410
  Serious: Yes (Hospitalization)
  Sender: FDA-Public Use
  Company Number: None

PATIENT
  Age: 72 Year
  Sex: Male
  Weight: 90 kg

DRUGS (1)
  1. ABEMACICLIB [Suspect]
     Active Substance: ABEMACICLIB
     Indication: Bladder cancer
     Dosage: FREQUENCY : TWICE A DAY;?
     Route: 048
     Dates: start: 20231010, end: 20231108

REACTIONS (12)
  - Vomiting [None]
  - Hepatic lesion [None]
  - Acute kidney injury [None]
  - Sepsis [None]
  - Urinary tract infection [None]
  - Anastomotic stenosis [None]
  - Nausea [None]
  - Urethral obstruction [None]
  - Metastases to liver [None]
  - Ascites [None]
  - Hydronephrosis [None]
  - Abdominal lymphadenopathy [None]

NARRATIVE: CASE EVENT DATE: 20240113
